FAERS Safety Report 21159115 (Version 1)
Quarter: 2022Q3

REPORT INFORMATION
  Report Type: Spontaneous
  Country: US (occurrence: US)
  Receive Date: 20220802
  Receipt Date: 20220802
  Transmission Date: 20221026
  Serious: Yes (Hospitalization, Other)
  Sender: FDA-Public Use
  Company Number: US-SUN PHARMACEUTICAL INDUSTRIES LTD-2022R1-346893

PATIENT
  Age: 21 Year
  Sex: Female

DRUGS (1)
  1. BACLOFEN [Suspect]
     Active Substance: BACLOFEN
     Indication: Back pain
     Dosage: UNK (AS NEEDED)
     Route: 065

REACTIONS (8)
  - Lethargy [Recovering/Resolving]
  - Unresponsive to stimuli [Recovering/Resolving]
  - Dizziness [Recovering/Resolving]
  - Hallucinations, mixed [Recovering/Resolving]
  - Treatment noncompliance [Unknown]
  - Toxicity to various agents [Unknown]
  - Cognitive disorder [Recovering/Resolving]
  - Respiratory depression [Recovering/Resolving]
